FAERS Safety Report 7722967-6 (Version None)
Quarter: 2011Q3

REPORT INFORMATION
  Report Type: 
  Country: None (occurrence: None)
  Receive Date: 20110826
  Receipt Date: 20110812
  Transmission Date: 20111222
  Serious: Yes (Hospitalization)
  Sender: FDA-Public Use
  Company Number: 2011P1008307

PATIENT
  Age: 52 Year
  Sex: Female
  Weight: 99.7913 kg

DRUGS (6)
  1. DIZEPAM [Concomitant]
  2. LISINOPRIL [Concomitant]
  3. OXYCODONE HCL [Concomitant]
  4. SOMA [Concomitant]
  5. FENTANYL CITRATE [Suspect]
     Indication: PAIN
     Dosage: 1-2 PATCHES;Q72H;TDER
     Route: 062
     Dates: start: 20110612
  6. FENTANYL [Suspect]
     Indication: PAIN
     Dosage: 0-2 PATCHES;Q72H;TDER
     Route: 062
     Dates: start: 20110612

REACTIONS (12)
  - APPLICATION SITE ERYTHEMA [None]
  - MALAISE [None]
  - URINARY TRACT INFECTION [None]
  - HYPOTENSION [None]
  - ANGINA PECTORIS [None]
  - HYPERHIDROSIS [None]
  - LIP SWELLING [None]
  - BURNING SENSATION [None]
  - DRY MOUTH [None]
  - FATIGUE [None]
  - APPLICATION SITE PAIN [None]
  - VAGINAL INFECTION [None]
